FAERS Safety Report 18966425 (Version 1)
Quarter: 2021Q1

REPORT INFORMATION
  Report Type: Spontaneous
  Country: US (occurrence: US)
  Receive Date: 20210304
  Receipt Date: 20210304
  Transmission Date: 20210420
  Serious: No
  Sender: FDA-Public Use
  Company Number: US-MICRO LABS LIMITED-ML2021-00096

PATIENT
  Age: 69 Year
  Sex: Female
  Weight: 72.64 kg

DRUGS (8)
  1. AMLODIPINE [Concomitant]
     Active Substance: AMLODIPINE BESYLATE
     Indication: HYPERTENSION
     Dosage: ONCE IN A MORNING
  2. DORZOLAMIDE HYDROCHLORIDE OPHTHALMIC SOLUTION USP, 2% [Suspect]
     Active Substance: DORZOLAMIDE HYDROCHLORIDE
     Indication: GLAUCOMA
     Dosage: ONE DROP THREE TIMES A DAY IN EACH EYE
     Dates: start: 20201124
  3. FUROSEMIDE. [Concomitant]
     Active Substance: FUROSEMIDE
     Dosage: ONCE IN A MORNING
  4. ASPIRIN. [Concomitant]
     Active Substance: ASPIRIN
  5. NAPROXEN SODIUM. [Concomitant]
     Active Substance: NAPROXEN SODIUM
     Dosage: OTC
  6. VITAMIN D [Concomitant]
     Active Substance: VITAMIN D NOS
  7. MULTIVITAMIN [Concomitant]
     Active Substance: VITAMINS
     Dosage: FOR WOMEN OVER THE AGE OF 50 YEARS
  8. BRIMONIDINE TARTRATE. [Concomitant]
     Active Substance: BRIMONIDINE TARTRATE
     Dosage: 5 TO 30 MINUTES BEFORE OUR PRODUCT

REACTIONS (3)
  - Eye pain [Not Recovered/Not Resolved]
  - Somnolence [Not Recovered/Not Resolved]
  - Dysgeusia [Not Recovered/Not Resolved]

NARRATIVE: CASE EVENT DATE: 20201124
